APPROVED DRUG PRODUCT: OMEPRAZOLE
Active Ingredient: OMEPRAZOLE
Strength: 20MG
Dosage Form/Route: TABLET, DELAYED RELEASE;ORAL
Application: A207891 | Product #001
Applicant: SUN PHARMACEUTICAL INDUSTRIES LTD
Approved: Oct 12, 2018 | RLD: No | RS: No | Type: OTC